FAERS Safety Report 10039153 (Version 2)
Quarter: 2014Q2

REPORT INFORMATION
  Report Type: Spontaneous
  Country: IT (occurrence: IT)
  Receive Date: 20140326
  Receipt Date: 20140401
  Transmission Date: 20141212
  Serious: Yes (Other)
  Sender: FDA-Public Use
  Company Number: PHHY2014IT034661

PATIENT
  Age: 69 Year
  Sex: Female

DRUGS (4)
  1. GLIVEC [Suspect]
     Indication: CHRONIC MYELOID LEUKAEMIA
     Dosage: 400 MG, QD
     Dates: start: 201005
  2. CALCIUM CHANNEL BLOCKERS [Concomitant]
     Dosage: UNK UKN, UNK
  3. IRON SUPPLEMENTS [Concomitant]
     Dosage: UNK UKN, UNK
  4. NSAID^S [Concomitant]
     Dosage: UNK UKN, UNK

REACTIONS (2)
  - Sarcoma uterus [Unknown]
  - Second primary malignancy [Unknown]
